FAERS Safety Report 7587925-3 (Version None)
Quarter: 2011Q3

REPORT INFORMATION
  Report Type: 
  Country: None (occurrence: None)
  Receive Date: 20110705
  Receipt Date: 20110622
  Transmission Date: 20111222
  Serious: Yes (Life-Threatening, Hospitalization, Disabling)
  Sender: FDA-Public Use
  Company Number: JP-AMGEN-JPNSP2011021609

PATIENT
  Age: 64 Year
  Sex: Male
  Weight: 48.8 kg

DRUGS (11)
  1. ENBREL [Suspect]
     Indication: RHEUMATOID ARTHRITIS
     Dosage: 25 MG, 2X/WEEK
     Route: 058
     Dates: start: 20060829, end: 20080812
  2. STEROID ANTIBACTERIALS [Suspect]
     Indication: RHEUMATOID ARTHRITIS
     Dosage: UNK
     Route: 048
  3. FOSAMAX [Concomitant]
     Dosage: 35 MG, 1X/DAY
     Route: 048
     Dates: start: 20060106, end: 20110419
  4. ENBREL [Suspect]
     Dosage: 25 MG, 2X/DAY
     Dates: start: 20080909, end: 20110419
  5. PREDNISOLONE [Suspect]
     Dosage: UNK
     Route: 048
     Dates: start: 20050701
  6. PREDNISOLONE [Suspect]
     Dosage: 4 MG, 1X/DAY
     Route: 048
     Dates: start: 20090421, end: 20110419
  7. GASTER                             /00706001/ [Concomitant]
     Dosage: 20 MG, 1X/DAY
     Route: 048
     Dates: start: 20050815, end: 20110419
  8. LOXONIN [Concomitant]
     Dosage: 60 MG, 3X/DAY
     Route: 048
     Dates: start: 20050815, end: 20110419
  9. RHEUMATREX [Suspect]
     Dosage: 2 DF, WEEKLY
     Route: 048
     Dates: start: 20060101, end: 20110419
  10. PREDNISOLONE [Suspect]
     Dosage: 5 MG, 1X/DAY
     Route: 048
     Dates: start: 20090324
  11. MUCOSTA [Concomitant]
     Dosage: 100 MG, 3X/DAY
     Route: 048
     Dates: start: 20050815, end: 20110419

REACTIONS (2)
  - LARGE INTESTINE PERFORATION [None]
  - DIVERTICULITIS [None]
